FAERS Safety Report 13745677 (Version 1)
Quarter: 2017Q3

REPORT INFORMATION
  Report Type: Spontaneous
  Country: JP (occurrence: JP)
  Receive Date: 20170712
  Receipt Date: 20170712
  Transmission Date: 20171127
  Serious: Yes (Other)
  Sender: FDA-Public Use
  Company Number: JP-PFIZER INC-2017294623

PATIENT
  Age: 68 Year
  Sex: Female

DRUGS (4)
  1. GRANDAXIN [Concomitant]
     Active Substance: TOFISOPAM
     Dosage: UNK
     Route: 048
     Dates: start: 20170612
  2. EFFEXOR [Suspect]
     Active Substance: VENLAFAXINE HYDROCHLORIDE
     Indication: DEPRESSION
     Dosage: 37.5 MG, DAILY
     Route: 048
     Dates: start: 20170612, end: 20170705
  3. MAGMITT [Concomitant]
     Active Substance: MAGNESIUM OXIDE
     Indication: CONSTIPATION
     Dosage: 1.32 MG, UNK
     Route: 048
     Dates: start: 20170313
  4. LEXOTAN [Concomitant]
     Active Substance: BROMAZEPAM
     Dosage: 2 MG, UNK
     Route: 048
     Dates: start: 20170306

REACTIONS (2)
  - Toxic skin eruption [Unknown]
  - Rash papular [Unknown]

NARRATIVE: CASE EVENT DATE: 201707
